FAERS Safety Report 18215533 (Version 3)
Quarter: 2021Q2

REPORT INFORMATION
  Report Type: Spontaneous
  Country: US (occurrence: US)
  Receive Date: 20200831
  Receipt Date: 20210630
  Transmission Date: 20210717
  Serious: Yes (Other)
  Sender: FDA-Public Use
  Company Number: US-GILEAD-2020-0482853

PATIENT
  Age: 52 Year
  Sex: Male
  Weight: 68.93 kg

DRUGS (22)
  1. NEXIUM [Concomitant]
     Active Substance: ESOMEPRAZOLE MAGNESIUM
  2. POTASSIUM CHLORIDE. [Concomitant]
     Active Substance: POTASSIUM CHLORIDE
  3. ALLOPURINOL. [Concomitant]
     Active Substance: ALLOPURINOL
  4. AMOXICILLIN. [Concomitant]
     Active Substance: AMOXICILLIN
  5. ARIPIPRAZOLE. [Concomitant]
     Active Substance: ARIPIPRAZOLE
  6. TRUVADA [Suspect]
     Active Substance: EMTRICITABINE\TENOFOVIR DISOPROXIL FUMARATE
     Indication: HIV INFECTION
     Dosage: UNK
     Route: 048
     Dates: start: 200803, end: 201909
  7. VIREAD [Suspect]
     Active Substance: TENOFOVIR DISOPROXIL FUMARATE
     Indication: HIV INFECTION
     Dosage: UNK
     Route: 048
     Dates: start: 200301, end: 200803
  8. REYATAZ [Concomitant]
     Active Substance: ATAZANAVIR SULFATE
  9. QUETIAPINE. [Concomitant]
     Active Substance: QUETIAPINE
  10. WARFARIN [Concomitant]
     Active Substance: WARFARIN
  11. KALETRA [Concomitant]
     Active Substance: LOPINAVIR\RITONAVIR
  12. MARIJUANA [Concomitant]
     Active Substance: CANNABIS SATIVA SUBSP. INDICA TOP
  13. NORVIR [Concomitant]
     Active Substance: RITONAVIR
  14. ISENTRESS [Concomitant]
     Active Substance: RALTEGRAVIR POTASSIUM
  15. BIKTARVY [Concomitant]
     Active Substance: BICTEGRAVIR SODIUM\EMTRICITABINE\TENOFOVIR ALAFENAMIDE FUMARATE
  16. COMBIVIR [Concomitant]
     Active Substance: LAMIVUDINE\ZIDOVUDINE
  17. PREZISTA [Concomitant]
     Active Substance: DARUNAVIR ETHANOLATE
  18. LASIX [Concomitant]
     Active Substance: FUROSEMIDE
  19. NIASPAN [Concomitant]
     Active Substance: NIACIN
  20. DESCOVY [Concomitant]
     Active Substance: EMTRICITABINE\TENOFOVIR ALAFENAMIDE FUMARATE
  21. EPIVIR [Concomitant]
     Active Substance: LAMIVUDINE
  22. FLUOXETINE [Concomitant]
     Active Substance: FLUOXETINE HYDROCHLORIDE

REACTIONS (26)
  - Wrist fracture [Recovered/Resolved]
  - Depression [Not Recovered/Not Resolved]
  - Anxiety [Unknown]
  - Quality of life decreased [Unknown]
  - Multiple fractures [Recovered/Resolved]
  - Fall [Recovered/Resolved]
  - Pain [Not Recovered/Not Resolved]
  - Limb fracture [Unknown]
  - Arthralgia [Unknown]
  - Weight bearing difficulty [Unknown]
  - Osteopenia [Not Recovered/Not Resolved]
  - Emotional distress [Unknown]
  - Pain in extremity [Unknown]
  - Fear-related avoidance of activities [Unknown]
  - Anhedonia [Unknown]
  - Osteoporosis [Not Recovered/Not Resolved]
  - Lower limb fracture [Recovered/Resolved]
  - Emotional distress [Not Recovered/Not Resolved]
  - Tibia fracture [Recovered/Resolved]
  - Bone loss [Unknown]
  - Foot fracture [Recovered/Resolved]
  - Hip arthroplasty [Unknown]
  - Bone density decreased [Not Recovered/Not Resolved]
  - Back pain [Unknown]
  - Loss of personal independence in daily activities [Unknown]
  - Mobility decreased [Unknown]

NARRATIVE: CASE EVENT DATE: 2005
